FAERS Safety Report 10759823 (Version 1)
Quarter: 2015Q1

REPORT INFORMATION
  Report Type: Spontaneous
  Country: US (occurrence: US)
  Receive Date: 20150203
  Receipt Date: 20150203
  Transmission Date: 20150721
  Serious: Yes (Hospitalization)
  Sender: FDA-Public Use
  Company Number: US-GLAXOSMITHKLINE-US2015012617

PATIENT
  Sex: Female

DRUGS (14)
  1. VITAMIN D [Concomitant]
     Active Substance: CHOLECALCIFEROL
  2. ADVAIR DISKUS [Suspect]
     Active Substance: FLUTICASONE PROPIONATE\SALMETEROL XINAFOATE
     Indication: CHRONIC OBSTRUCTIVE PULMONARY DISEASE
     Dosage: 1 PUFF(S), QD
     Route: 055
     Dates: start: 2010
  3. ATORVASTATIN [Concomitant]
     Active Substance: ATORVASTATIN
  4. SODIUM [Concomitant]
     Active Substance: SODIUM
  5. VITAMIN E [Concomitant]
     Active Substance: .ALPHA.-TOCOPHEROL
  6. HYDROCHLOROTHIAZIDE. [Concomitant]
     Active Substance: HYDROCHLOROTHIAZIDE
  7. ASPIRIN. [Concomitant]
     Active Substance: ASPIRIN
  8. CALCIUM [Concomitant]
     Active Substance: CALCIUM
  9. POTASSIUM CHLORIDE. [Concomitant]
     Active Substance: POTASSIUM CHLORIDE
  10. ALENDRONATE [Concomitant]
     Active Substance: ALENDRONATE SODIUM
  11. DONEPEZIL [Concomitant]
     Active Substance: DONEPEZIL
  12. CITALOPRAM [Concomitant]
     Active Substance: CITALOPRAM HYDROBROMIDE
  13. LEVOTHYROXINE [Concomitant]
     Active Substance: LEVOTHYROXINE
  14. ROPINIROLE. [Concomitant]
     Active Substance: ROPINIROLE

REACTIONS (8)
  - Amnesia [Not Recovered/Not Resolved]
  - Chronic obstructive pulmonary disease [Unknown]
  - Pain in extremity [Not Recovered/Not Resolved]
  - Back pain [Not Recovered/Not Resolved]
  - Back disorder [Not Recovered/Not Resolved]
  - Spinal deformity [Not Recovered/Not Resolved]
  - Osteoporosis [Not Recovered/Not Resolved]
  - Intentional product use issue [Recovered/Resolved]

NARRATIVE: CASE EVENT DATE: 2014
